FAERS Safety Report 6063417-8 (Version None)
Quarter: 2009Q1

REPORT INFORMATION
  Report Type: 
  Country: None (occurrence: None)
  Receive Date: 20090129
  Receipt Date: 20090113
  Transmission Date: 20090719
  Serious: Yes (Hospitalization)
  Sender: FDA-Public Use
  Company Number: KV200900077

PATIENT
  Age: 57 Year
  Sex: Male
  Weight: 117.9 kg

DRUGS (3)
  1. PROPAFENONE HYDROCHLORIDE [Suspect]
     Indication: ATRIAL FIBRILLATION
     Dosage: 300 MG, BID, ORAL
     Route: 048
     Dates: end: 20080901
  2. CRESTOR [Concomitant]
  3. COUMADIN      /0014802 (WARFARIN SODIUM) [Concomitant]

REACTIONS (10)
  - ANXIETY [None]
  - ATRIAL FIBRILLATION [None]
  - CHEST PAIN [None]
  - DYSPNOEA [None]
  - ERYTHEMA [None]
  - FATIGUE [None]
  - FLUSHING [None]
  - HYPERSENSITIVITY [None]
  - HYPOTENSION [None]
  - THROAT TIGHTNESS [None]
